FAERS Safety Report 9188852 (Version 2)
Quarter: 2013Q3

REPORT INFORMATION
  Report Type: Spontaneous
  Country: US (occurrence: US)
  Receive Date: 20130326
  Receipt Date: 20130829
  Transmission Date: 20140515
  Serious: Yes (Death, Other)
  Sender: FDA-Public Use
  Company Number: US-PFIZER INC-2013093064

PATIENT
  Age: 56 Year
  Sex: Male

DRUGS (6)
  1. CHANTIX [Suspect]
     Dosage: UNK
     Dates: start: 20100908, end: 20101026
  2. CHANTIX [Suspect]
     Dosage: 1 MG, UNK
     Dates: start: 20101006
  3. FUROSEMIDE [Concomitant]
     Dosage: 80 MG, UNK
     Route: 048
     Dates: start: 20101018
  4. PROPAFENONE [Concomitant]
     Dosage: 150 MG, UNK
     Route: 048
     Dates: start: 20101018
  5. FAMOTIDINE [Concomitant]
     Dosage: 20 MG, UNK
     Route: 048
     Dates: start: 20101018
  6. SMZ/DMP DS [Concomitant]
     Dosage: 800-160, UNK
     Route: 048
     Dates: start: 20101022

REACTIONS (1)
  - Completed suicide [Fatal]
